FAERS Safety Report 9506303 (Version 1)
Quarter: 2013Q1

REPORT INFORMATION
  Report Type: Spontaneous
  Country: US (occurrence: None)
  Receive Date: 20130305
  Receipt Date: 20130305
  Transmission Date: 20140127
  Serious: Yes (Disabling)
  Sender: FDA-Public Use
  Company Number: 163-21880-12050411

PATIENT
  Age: 69 Year
  Sex: Male

DRUGS (9)
  1. REVLIMID [Suspect]
     Indication: PLASMA CELL MYELOMA
     Dosage: 10 MG, 1 IN 1 D, PO
     Route: 048
     Dates: start: 20101103, end: 20120304
  2. CALCITRIOL (CALCITRIOL) (CAPSULES) [Concomitant]
  3. PAROXETINE (PAROXETINE) (TABLETS) [Concomitant]
  4. ACYCLOVIR (ACICLOVIR) (TABLETS) [Concomitant]
  5. LEVETIRACETAM (LEVETIRACETAM) (TABLETS) [Concomitant]
  6. MORPHINE SULFATE (MORPHINE SULFATE) INJECTION [Concomitant]
  7. OXYCONTIN (OXYCODONE HYDROCHLORIDE) [Concomitant]
  8. ONDANSETRON (ONDANSETRON) (TABLETS) [Concomitant]
  9. B-D U/FN PEN (ALL OTHER THERAPEUTIC PRODUCTS) [Concomitant]

REACTIONS (1)
  - Dizziness [None]
